FAERS Safety Report 9140723 (Version 4)
Quarter: 2013Q2

REPORT INFORMATION
  Report Type: Spontaneous
  Country: US (occurrence: US)
  Receive Date: 20130305
  Receipt Date: 20130417
  Transmission Date: 20140414
  Serious: Yes (Death, Hospitalization, Other)
  Sender: FDA-Public Use
  Company Number: US-ALEXION-A201300332

PATIENT
  Sex: Female

DRUGS (5)
  1. SOLIRIS 300MG [Suspect]
     Indication: PAROXYSMAL NOCTURNAL HAEMOGLOBINURIA
     Dosage: 900 MG, Q2W
     Route: 042
     Dates: start: 201208
  2. PREDNISONE [Concomitant]
     Dosage: 40 MG, QD
     Route: 048
     Dates: start: 201302
  3. PREDNISONE [Concomitant]
     Dosage: 10 MG, QD
     Route: 048
  4. BLOOD TRANSFUSION, AUXILIARY PRODUCTS [Concomitant]
  5. PLATELETS [Concomitant]

REACTIONS (6)
  - Aspergillus infection [Fatal]
  - Pancytopenia [Not Recovered/Not Resolved]
  - Haemolysis [Unknown]
  - Mucosal inflammation [Not Recovered/Not Resolved]
  - Drug ineffective [Unknown]
  - Urinary tract infection [Unknown]
